FAERS Safety Report 5693603-8 (Version None)
Quarter: 2008Q2

REPORT INFORMATION
  Report Type: 
  Country: None (occurrence: None)
  Receive Date: 20080403
  Receipt Date: 20080403
  Transmission Date: 20081010
  Serious: Yes (Death, Hospitalization)
  Sender: FDA-Public Use
  Company Number: None

PATIENT
  Age: 91 Year
  Sex: Female
  Weight: 58.9676 kg

DRUGS (2)
  1. HEPARIN [Suspect]
     Indication: THROMBOSIS
     Dates: start: 20080208, end: 20080214
  2. HEPARIN [Suspect]

REACTIONS (7)
  - DYSPNOEA [None]
  - HEADACHE [None]
  - HEART RATE INCREASED [None]
  - HYPOTENSION [None]
  - MALAISE [None]
  - THROMBOSIS [None]
  - VOMITING [None]
